FAERS Safety Report 9803077 (Version 1)
Quarter: 2014Q1

REPORT INFORMATION
  Report Type: Spontaneous
  Country: GR (occurrence: GR)
  Receive Date: 20140108
  Receipt Date: 20140108
  Transmission Date: 20141002
  Serious: Yes (Other)
  Sender: FDA-Public Use
  Company Number: GR-BAYER-2014-000637

PATIENT
  Sex: Male

DRUGS (4)
  1. DACARBAZINE [Suspect]
     Indication: HODGKIN^S DISEASE
     Dosage: UNK
  2. DOXORUBICIN [Suspect]
     Indication: HODGKIN^S DISEASE
     Dosage: UNK
  3. BLEOMYCIN [Suspect]
     Indication: HODGKIN^S DISEASE
     Dosage: UNK
  4. VINBLASTINE [Suspect]
     Indication: HODGKIN^S DISEASE
     Dosage: UNK

REACTIONS (1)
  - Osteosarcoma [None]
